FAERS Safety Report 18847775 (Version 1)
Quarter: 2021Q1

REPORT INFORMATION
  Report Type: Spontaneous
  Country: DE (occurrence: DE)
  Receive Date: 20210204
  Receipt Date: 20210204
  Transmission Date: 20210419
  Serious: Yes (Other)
  Sender: FDA-Public Use
  Company Number: DE-MYLANLABS-2021M1006644

PATIENT
  Age: 1 Day
  Sex: Female
  Weight: 2.61 kg

DRUGS (10)
  1. PREDNITOP /00949801/ [Suspect]
     Active Substance: PREDNICARBATE
     Indication: PSORIASIS
     Dosage: UNK
     Route: 064
     Dates: start: 20200218, end: 20200315
  2. MOMEGALEN [Suspect]
     Active Substance: MOMETASONE FUROATE
     Indication: PSORIASIS
     Dosage: UNK
     Route: 064
  3. COSENTYX [Concomitant]
     Active Substance: SECUKINUMAB
     Indication: PSORIATIC ARTHROPATHY
     Dosage: 300 MILLIGRAM, Q28D (EVERY 4 WEEKS)
     Route: 064
     Dates: start: 20191018, end: 20191018
  4. LOCACORTEN [Suspect]
     Active Substance: FLUMETHASONE PIVALATE
     Indication: PSORIASIS
     Dosage: UNK
     Route: 064
  5. PREDNISOLONE. [Suspect]
     Active Substance: PREDNISOLONE
     Indication: PSORIASIS
     Dosage: 20 MILLIGRAM, QD
     Route: 064
  6. PROTAPHANE [Concomitant]
     Active Substance: INSULIN HUMAN
     Indication: GESTATIONAL DIABETES
     Dosage: 16 INTERNATIONAL UNIT, QD (16 (I.E./D )
     Route: 064
  7. HUMALOG [Concomitant]
     Active Substance: INSULIN LISPRO
     Indication: GESTATIONAL DIABETES
     Dosage: UNK, QD (30 (I.E./D (MAX., 3X10 I.E.))
     Route: 064
  8. KARISON [Suspect]
     Active Substance: CLOBETASOL PROPIONATE
     Indication: PSORIASIS
     Dosage: UNK
     Route: 064
  9. THYRONAJOD [Concomitant]
     Active Substance: LEVOTHYROXINE SODIUM\POTASSIUM IODIDE
     Indication: HYPOTHYROIDISM
     Dosage: 50 (?G/D)/150 (?G/D )
     Route: 064
     Dates: start: 20191004, end: 20200710
  10. CICLOSPORIN [Suspect]
     Active Substance: CYCLOSPORINE
     Indication: PSORIASIS
     Dosage: 150 MILLIGRAM, QD ( 2 SEPARATED DOSES)
     Route: 064

REACTIONS (2)
  - Foetal exposure during pregnancy [Recovered/Resolved]
  - Small for dates baby [Recovered/Resolved]

NARRATIVE: CASE EVENT DATE: 20200710
